FAERS Safety Report 16691431 (Version 4)
Quarter: 2022Q2

REPORT INFORMATION
  Report Type: Report from Study
  Country: US (occurrence: US)
  Receive Date: 20190812
  Receipt Date: 20220610
  Transmission Date: 20220721
  Serious: No
  Sender: FDA-Public Use
  Company Number: PHEH2019US032803

PATIENT
  Sex: Female

DRUGS (3)
  1. ENTRESTO [Suspect]
     Active Substance: SACUBITRIL\VALSARTAN
     Indication: Cardiac failure chronic
     Dosage: UNK
     Route: 048
     Dates: start: 201902
  2. ENTRESTO [Suspect]
     Active Substance: SACUBITRIL\VALSARTAN
     Dosage: UNK, (97/103 MG)
     Route: 065
  3. ENTRESTO [Suspect]
     Active Substance: SACUBITRIL\VALSARTAN
     Dosage: UNK, (49/51 MG)
     Route: 065

REACTIONS (8)
  - Respiratory tract congestion [Unknown]
  - Weight increased [Unknown]
  - Blood glucose increased [Unknown]
  - Joint swelling [Unknown]
  - Weight loss poor [Unknown]
  - Renal disorder [Unknown]
  - Cough [Unknown]
  - Hypotension [Unknown]
